FAERS Safety Report 6943284-8 (Version None)
Quarter: 2010Q3

REPORT INFORMATION
  Report Type: 
  Country: None (occurrence: None)
  Receive Date: 20100825
  Receipt Date: 20100825
  Transmission Date: 20110219
  Serious: Yes (Hospitalization, Disabling, Other)
  Sender: FDA-Public Use
  Company Number: None

PATIENT
  Sex: Female
  Weight: 81.6475 kg

DRUGS (2)
  1. RECLAST [Suspect]
     Indication: OSTEOPOROSIS
     Dosage: RECLAST YEARLY INJECTION
     Dates: start: 20100809
  2. RECLAST [Suspect]
     Indication: TRAUMATIC FRACTURE
     Dosage: RECLAST YEARLY INJECTION
     Dates: start: 20100809

REACTIONS (4)
  - GAIT DISTURBANCE [None]
  - LIMB DISCOMFORT [None]
  - MOVEMENT DISORDER [None]
  - PYREXIA [None]
